FAERS Safety Report 10437329 (Version 1)
Quarter: 2014Q3

REPORT INFORMATION
  Report Type: Spontaneous
  Country: US (occurrence: US)
  Receive Date: 20140908
  Receipt Date: 20140908
  Transmission Date: 20150326
  Serious: No
  Sender: FDA-Public Use
  Company Number: US-BRISTOL-MYERS SQUIBB COMPANY-20352621

PATIENT
  Age: 50 Year
  Sex: Female

DRUGS (2)
  1. DIOVAN [Concomitant]
     Active Substance: VALSARTAN
  2. ABILIFY [Suspect]
     Active Substance: ARIPIPRAZOLE
     Indication: SCHIZOAFFECTIVE DISORDER BIPOLAR TYPE

REACTIONS (3)
  - Muscle rigidity [Unknown]
  - Heart rate increased [Unknown]
  - Dyspnoea [Unknown]
